FAERS Safety Report 4836369-3 (Version None)
Quarter: 2005Q4

REPORT INFORMATION
  Report Type: 
  Country: None (occurrence: None)
  Receive Date: 20051123
  Receipt Date: 20050617
  Transmission Date: 20060501
  Serious: Yes (Other)
  Sender: FDA-Public Use
  Company Number: PHBS2005NZ08851

PATIENT
  Sex: Female

DRUGS (1)
  1. GLEEVEC [Suspect]
     Dosage: FOETAL DRUG EXPOSURE VIA FATHER

REACTIONS (5)
  - ABORTION INDUCED [None]
  - JAUNDICE [None]
  - NAUSEA [None]
  - TRANSMISSION OF DRUG VIA SEMEN [None]
  - VOMITING [None]
